FAERS Safety Report 9788527 (Version 4)
Quarter: 2014Q1

REPORT INFORMATION
  Report Type: Spontaneous
  Country: US (occurrence: None)
  Receive Date: 20131227
  Receipt Date: 20140210
  Transmission Date: 20141002
  Serious: Yes (Life-Threatening)
  Sender: FDA-Public Use
  Company Number: FK201305541

PATIENT
  Sex: Female
  Weight: 109.5 kg

DRUGS (6)
  1. PROPOFOL [Suspect]
     Indication: INDUCTION OF ANAESTHESIA
     Dosage: 150 MG, IV PUSH, INTRAVENOUS (NOT OTHERWISE SPECIFIED)
     Route: 042
     Dates: start: 20131114
  2. ANCEF (CEFAZOLIN SODIUM) [Concomitant]
  3. FENTANYL (FENTANYL) [Concomitant]
  4. LIDOCAINE (LIDOCAINE) [Concomitant]
  5. SUCCINYLCHOLINE (SUXAMETHONIUM CHLORIDE) [Concomitant]
  6. VECURONIUM (VECURONIUM) [Concomitant]

REACTIONS (4)
  - Atrioventricular block [None]
  - Atrioventricular block complete [None]
  - Bradycardia [None]
  - Presyncope [None]
